FAERS Safety Report 13678870 (Version 9)
Quarter: 2018Q4

REPORT INFORMATION
  Report Type: Spontaneous
  Country: US (occurrence: US)
  Receive Date: 20170622
  Receipt Date: 20181108
  Transmission Date: 20190204
  Serious: Yes (Other)
  Sender: FDA-Public Use
  Company Number: US-PFIZER INC-2017268258

PATIENT
  Sex: Female
  Weight: 86 kg

DRUGS (3)
  1. EPINEPHRINE. [Suspect]
     Active Substance: EPINEPHRINE
     Dosage: UNK
     Route: 042
  2. EPINEPHRINE. [Suspect]
     Active Substance: EPINEPHRINE
     Dosage: 1 DROP IN EYE
     Route: 047
  3. EPINEPHRINE. [Suspect]
     Active Substance: EPINEPHRINE
     Dosage: UNK
     Route: 061

REACTIONS (5)
  - Drug hypersensitivity [Unknown]
  - Loss of consciousness [Unknown]
  - Muscle spasms [Unknown]
  - Laryngospasm [Unknown]
  - Vasospasm [Unknown]
